FAERS Safety Report 8958541 (Version 1)
Quarter: 2012Q4

REPORT INFORMATION
  Report Type: Spontaneous
  Country: DK (occurrence: None)
  Receive Date: 20121128
  Receipt Date: 20121128
  Transmission Date: 20130627
  Serious: Yes (Hospitalization)
  Sender: FDA-Public Use
  Company Number: 2012MA013501

PATIENT
  Age: 64 Year
  Sex: Female

DRUGS (1)
  1. OXALIPLATIN [Suspect]
     Route: 042
     Dates: start: 20121107, end: 20121107

REACTIONS (5)
  - Vertigo [None]
  - Tongue disorder [None]
  - Nervous system disorder [None]
  - Joint lock [None]
  - Musculoskeletal disorder [None]
